FAERS Safety Report 5057798-1 (Version None)
Quarter: 2006Q3

REPORT INFORMATION
  Report Type: 
  Country: None (occurrence: None)
  Receive Date: 20060721
  Receipt Date: 20060221
  Transmission Date: 20061208
  Serious: No
  Sender: FDA-Public Use
  Company Number: US-GLAXOSMITHKLINE-A0594654A

PATIENT
  Age: 54 Year
  Sex: Female

DRUGS (6)
  1. AVANDIA [Suspect]
     Dosage: 4MG TWICE PER DAY
     Route: 048
  2. METFORMIN HCL [Suspect]
     Dosage: 1000MG TWICE PER DAY
     Route: 048
  3. NEXIUM [Concomitant]
  4. DETROL [Concomitant]
  5. COZAAR [Concomitant]
  6. ANTICOAGULANT [Concomitant]

REACTIONS (1)
  - BLOOD GLUCOSE INCREASED [None]
